FAERS Safety Report 18601329 (Version 2)
Quarter: 2020Q4

REPORT INFORMATION
  Report Type: Spontaneous
  Country: CN (occurrence: CN)
  Receive Date: 20201210
  Receipt Date: 20201216
  Transmission Date: 20210114
  Serious: Yes (Other)
  Sender: FDA-Public Use
  Company Number: CN-JNJFOC-20201212427

PATIENT
  Sex: Male

DRUGS (1)
  1. DAKTARIN GOLD [Suspect]
     Active Substance: KETOCONAZOLE
     Indication: TINEA PEDIS
     Dosage: DAKTARIN GOLDEN 2% 1X15G CREAM
     Route: 061
     Dates: start: 2020

REACTIONS (2)
  - Wound infection [Unknown]
  - Drug ineffective [Unknown]

NARRATIVE: CASE EVENT DATE: 2020
